FAERS Safety Report 7679313-6 (Version None)
Quarter: 2011Q3

REPORT INFORMATION
  Report Type: 
  Country: None (occurrence: None)
  Receive Date: 20110809
  Receipt Date: 20110727
  Transmission Date: 20111222
  Serious: Yes (Hospitalization)
  Sender: FDA-Public Use
  Company Number: 2011-2694

PATIENT
  Age: 76 Year
  Sex: Female

DRUGS (1)
  1. APOKYN [Suspect]
     Indication: PARKINSON'S DISEASE
     Dosage: 5 MG, SUBCUTANEOUS
     Route: 058
     Dates: start: 20110501

REACTIONS (1)
  - CARDIAC FAILURE CONGESTIVE [None]
